FAERS Safety Report 25243199 (Version 1)
Quarter: 2025Q2

REPORT INFORMATION
  Report Type: Report from Study
  Country: US (occurrence: US)
  Receive Date: 20250428
  Receipt Date: 20250428
  Transmission Date: 20250717
  Serious: Yes (Other)
  Sender: TAKEDA
  Company Number: US-TAKEDA-2023TUS016792

PATIENT
  Age: 64 Year
  Sex: Male
  Weight: 88 kg

DRUGS (13)
  1. IXAZOMIB [Suspect]
     Active Substance: IXAZOMIB
     Indication: Plasma cell myeloma
  2. IXAZOMIB [Suspect]
     Active Substance: IXAZOMIB
  3. REVLIMID [Suspect]
     Active Substance: LENALIDOMIDE
     Indication: Product used for unknown indication
  4. DEXAMETHASONE [Concomitant]
     Active Substance: DEXAMETHASONE
     Dosage: 5 MILLIGRAM, BID
     Dates: start: 20210620
  5. DEXAMETHASONE [Concomitant]
     Active Substance: DEXAMETHASONE
  6. MORPHINE [Concomitant]
     Active Substance: MORPHINE
     Indication: Pain
  7. GABAPENTIN [Concomitant]
     Active Substance: GABAPENTIN
     Indication: Nerve injury
     Dosage: 600 MILLIGRAM, Q4HR
  8. GABAPENTIN [Concomitant]
     Active Substance: GABAPENTIN
     Indication: Pain
  9. ACYCLOVIR [Concomitant]
     Active Substance: ACYCLOVIR
  10. PREGABALIN [Concomitant]
     Active Substance: PREGABALIN
  11. MONTELUKAST [Concomitant]
     Active Substance: MONTELUKAST
     Indication: Traumatic lung injury
  12. PULMICORT TURBUHALER [Concomitant]
     Active Substance: BUDESONIDE
  13. ASPIRIN [Concomitant]
     Active Substance: ASPIRIN

REACTIONS (5)
  - Multiple fractures [Unknown]
  - Myelodysplastic syndrome [Unknown]
  - Product dose omission issue [Unknown]
  - Red blood cell count decreased [Unknown]
  - Fatigue [Unknown]

NARRATIVE: CASE EVENT DATE: 20230207
